FAERS Safety Report 14815066 (Version 1)
Quarter: 2018Q2

REPORT INFORMATION
  Report Type: Spontaneous
  Country: FR (occurrence: FR)
  Receive Date: 20180426
  Receipt Date: 20180426
  Transmission Date: 20180711
  Serious: Yes (Death, Life-Threatening)
  Sender: FDA-Public Use
  Company Number: FR-SA-2018SA117459

PATIENT
  Age: 26 Year
  Sex: Male
  Weight: 65 kg

DRUGS (6)
  1. FLUDARABINE PHOSPHATE. [Suspect]
     Active Substance: FLUDARABINE PHOSPHATE
     Indication: BONE MARROW TRANSPLANT
     Route: 042
     Dates: start: 20171026, end: 20171029
  2. MESNA. [Suspect]
     Active Substance: MESNA
     Route: 042
     Dates: start: 20171102, end: 20171112
  3. AMSACRINE [Suspect]
     Active Substance: AMSACRINE
     Indication: BONE MARROW TRANSPLANT
     Route: 042
     Dates: start: 20171026, end: 20171029
  4. ENDOXAN [Suspect]
     Active Substance: CYCLOPHOSPHAMIDE
     Indication: BONE MARROW TRANSPLANT
     Route: 042
     Dates: start: 20171102, end: 20171111
  5. ARACYTINE [Suspect]
     Active Substance: CYTARABINE
     Indication: BONE MARROW TRANSPLANT
     Route: 042
     Dates: start: 20171026, end: 20171029
  6. BUSILVEX [Suspect]
     Active Substance: BUSULFAN
     Indication: BONE MARROW TRANSPLANT
     Route: 042
     Dates: start: 20171103, end: 20171104

REACTIONS (2)
  - Venoocclusive liver disease [Fatal]
  - Septic shock [Fatal]

NARRATIVE: CASE EVENT DATE: 201711
